FAERS Safety Report 7476295-7 (Version None)
Quarter: 2011Q2

REPORT INFORMATION
  Report Type: 
  Country: None (occurrence: None)
  Receive Date: 20110512
  Receipt Date: 20110504
  Transmission Date: 20111010
  Serious: Yes (Hospitalization, Other)
  Sender: FDA-Public Use
  Company Number: US-AMGEN-USASP2011019370

PATIENT
  Age: 24 Year
  Sex: Male

DRUGS (6)
  1. RITUXAN [Concomitant]
     Dosage: UNK
     Dates: start: 20100421
  2. CYANOCOBALAMIN [Concomitant]
     Dosage: 1000 A?G, UNK
     Dates: start: 20101020
  3. IVIGLOB-EX [Concomitant]
     Dosage: UNK
     Dates: start: 20100422
  4. FILGRASTIM [Concomitant]
     Dosage: 300 A?G, UNK
     Dates: start: 20101110
  5. MEPERIDINE HCL [Concomitant]
     Dosage: 25 MG, UNK
  6. NPLATE [Suspect]
     Indication: IDIOPATHIC THROMBOCYTOPENIC PURPURA
     Dosage: 500 A?G, UNK
     Dates: start: 20100421

REACTIONS (5)
  - THERAPEUTIC RESPONSE DECREASED [None]
  - SPLENOMEGALY [None]
  - HEPATIC CIRRHOSIS [None]
  - PRURITUS [None]
  - DIABETES INSIPIDUS [None]
